FAERS Safety Report 5596952-7 (Version None)
Quarter: 2007Q4

REPORT INFORMATION
  Report Type: 
  Country: None (occurrence: None)
  Receive Date: 20071220
  Receipt Date: 20061220
  Transmission Date: 20080405
  Serious: No
  Sender: FDA-Public Use
  Company Number: 258363

PATIENT
  Age: 60 Year
  Sex: Female

DRUGS (4)
  1. NOVOLOG MIX 70/30 [Suspect]
     Indication: INSULIN-REQUIRING TYPE II DIABETES MELLITUS
     Dosage: 45 IU, QD, SUBCUTANEOUS
     Route: 058
     Dates: start: 20051001, end: 20061106
  2. DIOVAN HCT [Concomitant]
  3. LIPITOR [Concomitant]
  4. AMOXICILLIN [Concomitant]

REACTIONS (3)
  - DYSPNOEA [None]
  - HYPERSENSITIVITY [None]
  - RASH PRURITIC [None]
